FAERS Safety Report 9784717 (Version 2)
Quarter: 2013Q4

REPORT INFORMATION
  Report Type: Report from Study
  Country: BR (occurrence: BR)
  Receive Date: 20131227
  Receipt Date: 20131227
  Transmission Date: 20140711
  Serious: Yes (Other)
  Sender: FDA-Public Use
  Company Number: BR-AMGEN-US378954

PATIENT
  Age: 49 Year
  Sex: Male
  Weight: 104 kg

DRUGS (8)
  1. ETANERCEPT [Suspect]
     Indication: PSORIASIS
     Dosage: 25 MG, 2X/WEEK
     Route: 058
     Dates: start: 200810
  2. ETANERCEPT [Suspect]
     Indication: PSORIATIC ARTHROPATHY
     Dosage: UNK
     Route: 065
  3. UREA [Concomitant]
     Dosage: UNK
  4. SALICYLATES NOS [Concomitant]
     Dosage: UNK
  5. PROPRANOLOL [Concomitant]
     Dosage: 40 MG, 2X/DAY
  6. OMEPRAZOLE [Concomitant]
     Dosage: 20 MG, 1X/DAY
  7. VITAMIN E                          /00110501/ [Concomitant]
     Dosage: 400 MG, 1X/DAY
  8. SIMETICONE [Concomitant]
     Dosage: 40 MG, 2X/DAY

REACTIONS (8)
  - Drug effect incomplete [Not Recovered/Not Resolved]
  - Pruritus [Unknown]
  - Liver disorder [Unknown]
  - Joint injury [Unknown]
  - Spleen disorder [Unknown]
  - Pruritus [Unknown]
  - Skin exfoliation [Unknown]
  - Liver abscess [Unknown]
